FAERS Safety Report 13669406 (Version 7)
Quarter: 2019Q2

REPORT INFORMATION
  Report Type: Spontaneous
  Country: CA (occurrence: CA)
  Receive Date: 20170620
  Receipt Date: 20190403
  Transmission Date: 20190711
  Serious: Yes (Other)
  Sender: FDA-Public Use
  Company Number: CA-PFIZER INC-2017158138

PATIENT
  Age: 13 Month
  Sex: Male
  Weight: 11 kg

DRUGS (7)
  1. GENOTROPIN [Suspect]
     Active Substance: SOMATROPIN
     Dosage: 0.4 MG, ONCE DAILY
     Route: 058
  2. GENOTROPIN [Suspect]
     Active Substance: SOMATROPIN
     Dosage: 0.35 MG, ONCE DAILY
     Route: 058
  3. GENOTROPIN [Suspect]
     Active Substance: SOMATROPIN
     Dosage: 0.3 MG, ONCE DAILY
     Route: 058
     Dates: start: 20161223
  4. GENOTROPIN [Suspect]
     Active Substance: SOMATROPIN
     Dosage: 0.3 MG, ALTERNATE DAY
     Route: 058
  5. VITAMIN D /00107901/ [Concomitant]
     Active Substance: ERGOCALCIFEROL
     Dosage: UNK
  6. GENOTROPIN [Suspect]
     Active Substance: SOMATROPIN
     Indication: PRADER-WILLI SYNDROME
     Dosage: 0.25 MG, ONCE DAILY
     Route: 058
     Dates: start: 20161221
  7. CARNITOR [Concomitant]
     Active Substance: LEVOCARNITINE
     Dosage: 2 ML, ONCE DAILY

REACTIONS (7)
  - Platelet count increased [Unknown]
  - Incorrect dose administered [Unknown]
  - Respiratory tract infection viral [Recovered/Resolved]
  - Nasopharyngitis [Unknown]
  - C-reactive protein increased [Unknown]
  - Product prescribing error [Unknown]
  - Device issue [Unknown]

NARRATIVE: CASE EVENT DATE: 20170115
